FAERS Safety Report 5228372-9 (Version None)
Quarter: 2007Q1

REPORT INFORMATION
  Report Type: 
  Country: None (occurrence: None)
  Receive Date: 20070131
  Receipt Date: 20070131
  Transmission Date: 20070707
  Serious: Yes (Disabling, Other)
  Sender: FDA-Public Use
  Company Number: None

PATIENT
  Age: 2 Year
  Sex: Male
  Weight: 18.1439 kg

DRUGS (1)
  1. TOPAMAX [Suspect]
     Indication: EPILEPSY

REACTIONS (6)
  - APALLIC SYNDROME [None]
  - CATATONIA [None]
  - COORDINATION ABNORMAL [None]
  - HYPOTONIA [None]
  - SPEECH DISORDER [None]
  - VISUAL DISTURBANCE [None]
